FAERS Safety Report 7441753-8 (Version None)
Quarter: 2011Q2

REPORT INFORMATION
  Report Type: 
  Country: None (occurrence: None)
  Receive Date: 20110428
  Receipt Date: 20110426
  Transmission Date: 20111010
  Serious: Yes (Hospitalization)
  Sender: FDA-Public Use
  Company Number: SG-BRISTOL-MYERS SQUIBB COMPANY-15698145

PATIENT
  Age: 63 Year
  Sex: Male
  Weight: 82 kg

DRUGS (9)
  1. GEMZAR [Suspect]
     Indication: NON-SMALL CELL LUNG CANCER STAGE IV
     Dosage: LAST DOSE ON 01APR2011, DUR: 9 DAYS. INTERRUPTED ON 13APR2011.
     Route: 042
     Dates: start: 20110324
  2. VENTOLIN [Concomitant]
     Dosage: VENTOLIN HFA
  3. NECITUMUMAB [Suspect]
     Indication: NON-SMALL CELL LUNG CANCER STAGE IV
     Dosage: NECITUMUMAB LIQIUD 24MAR2011-01APR2011(9 DAYS) INTERRUPTED ON 13APR2011
     Route: 042
     Dates: start: 20110324
  4. PERMIXON [Concomitant]
  5. PLAVIX [Concomitant]
     Dates: start: 20010101, end: 20110413
  6. PROCODIN [Concomitant]
  7. CISPLATIN [Suspect]
     Indication: NON-SMALL CELL LUNG CANCER STAGE IV
     Dosage: LAST DOSE ON 24MAR2011 INTERRUPTED ON 13APR2011.
     Route: 042
     Dates: start: 20110324
  8. SIMVASTATIN [Concomitant]
  9. BISOPROLOL [Concomitant]

REACTIONS (1)
  - GASTROINTESTINAL HAEMORRHAGE [None]
